FAERS Safety Report 7537766-8 (Version None)
Quarter: 2011Q2

REPORT INFORMATION
  Report Type: 
  Country: None (occurrence: None)
  Receive Date: 20110609
  Receipt Date: 20080523
  Transmission Date: 20111010
  Serious: Yes (Other)
  Sender: FDA-Public Use
  Company Number: PHFR2008IE01341

PATIENT
  Sex: Male

DRUGS (4)
  1. AUGMENTIN DUO FORTE [Concomitant]
     Indication: VIRAL INFECTION
  2. CLOZAPINE [Suspect]
     Dosage: 225MG/DAY
  3. RABEPRAZOLE SODIUM [Concomitant]
     Dosage: 10 MG, UNK
     Route: 048
     Dates: start: 20050101
  4. CLOZAPINE [Suspect]
     Indication: SCHIZOPHRENIA
     Dosage: 250 MG, UNK
     Route: 048
     Dates: start: 20030213

REACTIONS (8)
  - VIRAL INFECTION [None]
  - DYSARTHRIA [None]
  - MALAISE [None]
  - FACIAL PARESIS [None]
  - ATAXIA [None]
  - HYPOTENSION [None]
  - COORDINATION ABNORMAL [None]
  - MOVEMENT DISORDER [None]
